FAERS Safety Report 4607778-2 (Version None)
Quarter: 2005Q1

REPORT INFORMATION
  Report Type: 
  Country: None (occurrence: None)
  Receive Date: 20050310
  Receipt Date: 20050301
  Transmission Date: 20050727
  Serious: Yes (Other)
  Sender: FDA-Public Use
  Company Number: 2005033297

PATIENT
  Age: 74 Year
  Sex: Male

DRUGS (5)
  1. LIPITOR [Suspect]
     Indication: HYPERCHOLESTEROLAEMIA
     Dosage: 20 MG (20 MG, 1 IN 1 D), ORAL
     Route: 048
     Dates: end: 20050201
  2. CLARITHROMYCIN [Suspect]
     Indication: INFLUENZA
     Dates: start: 20050201
  3. SALUTEC (HYDROCHLOROTHIAZIDE, RAMIPRIL) [Concomitant]
  4. IPRATROPIUM BROMIDE [Concomitant]
  5. NITROGLYCERIN [Concomitant]

REACTIONS (3)
  - DRUG INTERACTION [None]
  - INFLUENZA [None]
  - RHABDOMYOLYSIS [None]
